FAERS Safety Report 13468613 (Version 1)
Quarter: 2017Q2

REPORT INFORMATION
  Report Type: Spontaneous
  Country: US (occurrence: US)
  Receive Date: 20170421
  Receipt Date: 20170421
  Transmission Date: 20170830
  Serious: No
  Sender: FDA-Public Use
  Company Number: US-PURDUE-USA-2017-0137057

PATIENT
  Age: 33 Year
  Sex: Male
  Weight: 90.7 kg

DRUGS (1)
  1. OXYCODONE HCL TABLETS (RHODES 91-490) [Suspect]
     Active Substance: OXYCODONE HYDROCHLORIDE
     Indication: PAIN
     Dosage: 15 MG, UNK
     Route: 048
     Dates: start: 20170228

REACTIONS (2)
  - Dysphagia [Unknown]
  - Migraine [Unknown]

NARRATIVE: CASE EVENT DATE: 20170228
